FAERS Safety Report 22287359 (Version 1)
Quarter: 2023Q2

REPORT INFORMATION
  Report Type: Spontaneous
  Country: IT (occurrence: IT)
  Receive Date: 20230505
  Receipt Date: 20230505
  Transmission Date: 20230722
  Serious: Yes (Hospitalization, Other)
  Sender: FDA-Public Use
  Company Number: IT-SUN PHARMACEUTICAL INDUSTRIES LTD-2023R1-387548

PATIENT
  Age: 14 Year

DRUGS (3)
  1. ISONIAZID [Suspect]
     Active Substance: ISONIAZID
     Indication: Lymphadenopathy
     Dosage: UNK
     Route: 065
  2. ALLOPURINOL [Suspect]
     Active Substance: ALLOPURINOL
     Indication: Hepatic enzyme increased
     Dosage: UNK
     Route: 065
  3. PYRAZINAMIDE [Suspect]
     Active Substance: PYRAZINAMIDE
     Indication: Lymphadenopathy
     Dosage: UNK
     Route: 065

REACTIONS (4)
  - Disease recurrence [Unknown]
  - Alanine aminotransferase increased [Unknown]
  - Aspartate aminotransferase increased [Unknown]
  - Gamma-glutamyltransferase increased [Unknown]
